FAERS Safety Report 25477316 (Version 1)
Quarter: 2025Q2

REPORT INFORMATION
  Report Type: Spontaneous
  Country: LT (occurrence: LT)
  Receive Date: 20250625
  Receipt Date: 20250625
  Transmission Date: 20250716
  Serious: Yes (Death, Life-Threatening, Hospitalization, Other)
  Sender: RANBAXY
  Company Number: LT-SUN PHARMACEUTICAL INDUSTRIES LTD-2025R1-513533

PATIENT
  Sex: Female

DRUGS (4)
  1. METHOTREXATE [Suspect]
     Active Substance: METHOTREXATE
     Indication: Prophylaxis against graft versus host disease
     Route: 065
  2. MYCOPHENOLATE MOFETIL [Suspect]
     Active Substance: MYCOPHENOLATE MOFETIL
     Indication: Immunosuppressant drug therapy
     Route: 065
  3. METHYLPREDNISOLONE [Suspect]
     Active Substance: METHYLPREDNISOLONE
     Indication: Immunosuppressant drug therapy
     Dosage: 1 MILLIGRAM/KILOGRAM, DAILY
     Route: 065
  4. CYCLOSPORINE [Suspect]
     Active Substance: CYCLOSPORINE
     Indication: Prophylaxis against graft versus host disease
     Route: 065

REACTIONS (9)
  - Condition aggravated [Fatal]
  - Renal failure [Fatal]
  - Drug ineffective [Unknown]
  - Thrombotic microangiopathy [Unknown]
  - Thrombocytopenia [Unknown]
  - Hypertension [Unknown]
  - Proteinuria [Unknown]
  - Anaemia [Unknown]
  - Respiratory failure [Unknown]
